FAERS Safety Report 20448106 (Version 1)
Quarter: 2022Q1

REPORT INFORMATION
  Report Type: Spontaneous
  Country: US (occurrence: US)
  Receive Date: 20220209
  Receipt Date: 20220209
  Transmission Date: 20220423
  Serious: No
  Sender: FDA-Public Use
  Company Number: US-GILEAD-2022-0568916

PATIENT
  Sex: Male

DRUGS (4)
  1. SOFOSBUVIR\VELPATASVIR [Suspect]
     Active Substance: SOFOSBUVIR\VELPATASVIR
     Indication: Chronic hepatitis C
     Dosage: 1 DOSAGE FORM, QD
     Route: 048
  2. FUROSEMIDE [Concomitant]
     Active Substance: FUROSEMIDE
  3. AMLODIPINE BESYLATE [Concomitant]
     Active Substance: AMLODIPINE BESYLATE
  4. ESCITALOPRAM OXALATE [Concomitant]
     Active Substance: ESCITALOPRAM OXALATE

REACTIONS (2)
  - Headache [Unknown]
  - Insomnia [Unknown]
